FAERS Safety Report 4733346-8 (Version None)
Quarter: 2005Q3

REPORT INFORMATION
  Report Type: 
  Country: None (occurrence: None)
  Receive Date: 20050801
  Receipt Date: 20050801
  Transmission Date: 20060218
  Serious: Yes (Hospitalization)
  Sender: FDA-Public Use
  Company Number: None

PATIENT
  Age: 78 Year
  Sex: Male
  Weight: 75 kg

DRUGS (1)
  1. VANCOMYCIN [Suspect]
     Indication: MENINGITIS
     Dosage: 1 G Q24 IV
     Route: 042
     Dates: start: 20050527, end: 20050531

REACTIONS (3)
  - DRUG LEVEL INCREASED [None]
  - MENTAL STATUS CHANGES [None]
  - RENAL FAILURE ACUTE [None]
